FAERS Safety Report 14304669 (Version 1)
Quarter: 2017Q4

REPORT INFORMATION
  Report Type: Spontaneous
  Country: CH (occurrence: CH)
  Receive Date: 20171219
  Receipt Date: 20171219
  Transmission Date: 20180321
  Serious: Yes (Hospitalization, Other)
  Sender: FDA-Public Use
  Company Number: CH-OTSUKA-DJ201406214

PATIENT
  Age: 39 Year
  Sex: Female

DRUGS (1)
  1. ABILIFY [Suspect]
     Active Substance: ARIPIPRAZOLE
     Indication: PRODUCT USED FOR UNKNOWN INDICATION
     Dosage: 1120 MG, QD
     Route: 048

REACTIONS (6)
  - Depressed level of consciousness [Unknown]
  - Suicide attempt [Recovered/Resolved]
  - Hyponatraemia [Unknown]
  - Anal incontinence [Unknown]
  - Vomiting [Unknown]
  - Intentional overdose [Recovered/Resolved]

NARRATIVE: CASE EVENT DATE: 20131226
